FAERS Safety Report 7008916-7 (Version None)
Quarter: 2010Q3

REPORT INFORMATION
  Report Type: 
  Country: None (occurrence: None)
  Receive Date: 20100923
  Receipt Date: 20100415
  Transmission Date: 20110219
  Serious: No
  Sender: FDA-Public Use
  Company Number: US-ASTRAZENECA-2008UW27524

PATIENT
  Age: 340 Month
  Sex: Female
  Weight: 68 kg

DRUGS (3)
  1. SEROQUEL [Suspect]
     Indication: DEPRESSION
     Route: 048
     Dates: start: 20030501, end: 20060201
  2. SEROQUEL [Suspect]
     Indication: POST-TRAUMATIC STRESS DISORDER
     Route: 048
     Dates: start: 20030501, end: 20060201
  3. HALDOL [Concomitant]

REACTIONS (2)
  - DIABETES MELLITUS [None]
  - GESTATIONAL DIABETES [None]
